FAERS Safety Report 16596306 (Version 1)
Quarter: 2019Q3

REPORT INFORMATION
  Report Type: Report from Study
  Country: CO (occurrence: CO)
  Receive Date: 20190719
  Receipt Date: 20190719
  Transmission Date: 20191004
  Serious: Yes (Death, Life-Threatening, Hospitalization, Other)
  Sender: FDA-Public Use
  Company Number: PHHY2019CO033966

PATIENT
  Age: 58 Year
  Sex: Male

DRUGS (4)
  1. TAFINLAR [Suspect]
     Active Substance: DABRAFENIB MESYLATE
     Indication: METASTATIC MALIGNANT MELANOMA
     Dosage: 75 MG, QD
     Route: 048
     Dates: start: 20181214
  2. ACETAMINOPHEN. [Concomitant]
     Active Substance: ACETAMINOPHEN
     Indication: PAIN
     Dosage: 500 MG, PRN (WHEN THE PATIENT FEELS TOO MUCH PAIN)
     Route: 048
     Dates: start: 201811
  3. HYDROMORPHONE [Concomitant]
     Active Substance: HYDROMORPHONE
     Indication: PAIN
     Dosage: PRN (WHEN THE PATIENT FEELS TOO MUCH PAIN)
     Route: 048
     Dates: start: 201811
  4. MEKINIST [Suspect]
     Active Substance: TRAMETINIB DIMETHYL SULFOXIDE
     Indication: METASTATIC MALIGNANT MELANOMA
     Dosage: 2 MG, QD
     Route: 048
     Dates: start: 20181214

REACTIONS (16)
  - Feeling abnormal [Unknown]
  - Yellow skin [Unknown]
  - Food refusal [Unknown]
  - Malaise [Unknown]
  - Metastases to liver [Unknown]
  - Asthenia [Unknown]
  - Death [Fatal]
  - Malignant neoplasm progression [Unknown]
  - Depressed mood [Unknown]
  - Inappropriate schedule of product administration [Unknown]
  - Chromaturia [Unknown]
  - Blood bilirubin increased [Unknown]
  - Fatigue [Unknown]
  - Ocular icterus [Unknown]
  - Nausea [Unknown]
  - Metastatic malignant melanoma [Unknown]

NARRATIVE: CASE EVENT DATE: 201901
